FAERS Safety Report 19751682 (Version 1)
Quarter: 2021Q3

REPORT INFORMATION
  Report Type: Report from Study
  Country: None (occurrence: US)
  Receive Date: 20210827
  Receipt Date: 20210827
  Transmission Date: 20211014
  Serious: Yes (Other)
  Sender: FDA-Public Use
  Company Number: US-ABBVIE-21K-163-4051710-00

PATIENT
  Age: 80 Year
  Sex: Female

DRUGS (3)
  1. PFIZER?BIONTECH COVID?19 VACCINE [Concomitant]
     Active Substance: TOZINAMERAN
     Indication: COVID-19 IMMUNISATION
     Dosage: FIRST DOSE
     Route: 030
     Dates: start: 20210226, end: 20210226
  2. HUMIRA [Suspect]
     Active Substance: ADALIMUMAB
     Indication: RHEUMATOID ARTHRITIS
     Route: 058
  3. PFIZER?BIONTECH COVID?19 VACCINE [Concomitant]
     Active Substance: TOZINAMERAN
     Dosage: SECOND DOSE
     Route: 030
     Dates: start: 20210319, end: 20210319

REACTIONS (8)
  - Muscle spasms [Not Recovered/Not Resolved]
  - Loss of consciousness [Unknown]
  - Fall [Unknown]
  - Food poisoning [Not Recovered/Not Resolved]
  - Face injury [Unknown]
  - Pain [Not Recovered/Not Resolved]
  - Hand fracture [Unknown]
  - Contusion [Unknown]

NARRATIVE: CASE EVENT DATE: 202108
